FAERS Safety Report 16136183 (Version 2)
Quarter: 2019Q3

REPORT INFORMATION
  Report Type: Spontaneous
  Country: FR (occurrence: FR)
  Receive Date: 20190329
  Receipt Date: 20190712
  Transmission Date: 20191004
  Serious: Yes (Other)
  Sender: FDA-Public Use
  Company Number: FR-ASTRAZENECA-2019SE47919

PATIENT
  Age: 14721 Day
  Sex: Female
  Weight: 91 kg

DRUGS (7)
  1. SPIRIVA [Concomitant]
     Active Substance: TIOTROPIUM BROMIDE MONOHYDRATE
     Indication: ASTHMA
     Dates: start: 2016
  2. INORIAL [Concomitant]
     Active Substance: BILASTINE
  3. VENTOLINE [Concomitant]
     Active Substance: ALBUTEROL
     Indication: ASTHMA
     Dosage: 100.0MG AS REQUIRED
     Dates: start: 2013
  4. SOLUPRED [Concomitant]
     Indication: ASTHMA
     Dosage: 20.0MG UNKNOWN
     Dates: start: 2016
  5. FASENRA [Suspect]
     Active Substance: BENRALIZUMAB
     Indication: ASTHMA
     Route: 058
     Dates: start: 20190115, end: 20190214
  6. SERETIDE [Concomitant]
     Active Substance: FLUTICASONE PROPIONATE\SALMETEROL XINAFOATE
     Indication: ASTHMA
     Dates: start: 2007
  7. AVAMYS [Concomitant]
     Active Substance: FLUTICASONE FUROATE
     Indication: RHINITIS
     Dosage: AS REQUIRED.

REACTIONS (6)
  - Face oedema [Recovered/Resolved]
  - Blood immunoglobulin E increased [Unknown]
  - Anion gap abnormal [Unknown]
  - Eosinophil count abnormal [Unknown]
  - C-reactive protein increased [Unknown]
  - Drug ineffective [Unknown]

NARRATIVE: CASE EVENT DATE: 20190115
